FAERS Safety Report 26162643 (Version 1)
Quarter: 2025Q4

REPORT INFORMATION
  Report Type: Spontaneous
  Country: JP (occurrence: JP)
  Receive Date: 20251216
  Receipt Date: 20251216
  Transmission Date: 20260117
  Serious: Yes (Hospitalization)
  Sender: JOHNSON AND JOHNSON
  Company Number: JP-JNJFOC-20251214061

PATIENT
  Age: 76 Year
  Sex: Female
  Weight: 40 kg

DRUGS (10)
  1. RYBREVANT [Suspect]
     Active Substance: AMIVANTAMAB-VMJW
     Indication: Lung adenocarcinoma
     Dosage: DOSE UNKNOWN
     Route: 041
  2. RYBREVANT [Suspect]
     Active Substance: AMIVANTAMAB-VMJW
     Route: 041
     Dates: start: 20251114
  3. BAZEDOXIFENE ACETATE [Suspect]
     Active Substance: BAZEDOXIFENE ACETATE
     Indication: Osteoporosis
     Route: 048
  4. FOLIC ACID [Concomitant]
     Active Substance: FOLIC ACID
     Indication: Product used for unknown indication
     Route: 048
  5. MIYA-BM [Concomitant]
     Active Substance: CLOSTRIDIUM BUTYRICUM SPORES STRAIN M-55
     Indication: Product used for unknown indication
     Dosage: DOSE UNKNOWN
     Route: 048
  6. VIBEGRON [Concomitant]
     Active Substance: VIBEGRON
     Indication: Product used for unknown indication
     Route: 048
  7. CARBOPLATIN [Concomitant]
     Active Substance: CARBOPLATIN
     Indication: Lung adenocarcinoma
     Dosage: DOSE UNKNOWN
     Route: 041
  8. CARBOPLATIN [Concomitant]
     Active Substance: CARBOPLATIN
     Dosage: DOSE UNKNOWN
     Route: 041
  9. PEMETREXED [Concomitant]
     Active Substance: PEMETREXED
     Indication: Lung adenocarcinoma
     Dosage: DOSE UNKNOWN
     Route: 041
  10. PEMETREXED [Concomitant]
     Active Substance: PEMETREXED
     Dosage: DOSE UNKNOWN
     Route: 041

REACTIONS (2)
  - Pulmonary embolism [Recovered/Resolved]
  - Oedema peripheral [Recovered/Resolved]

NARRATIVE: CASE EVENT DATE: 20251114
